FAERS Safety Report 9438254 (Version 1)
Quarter: 2013Q3

REPORT INFORMATION
  Report Type: Spontaneous
  Country: US (occurrence: US)
  Receive Date: 20130802
  Receipt Date: 20130802
  Transmission Date: 20140515
  Serious: No
  Sender: FDA-Public Use
  Company Number: US-BRISTOL-MYERS SQUIBB COMPANY-17093600

PATIENT
  Age: 68 Year
  Sex: Female
  Weight: 68.93 kg

DRUGS (9)
  1. COUMADIN TABS 5 MG [Suspect]
     Indication: ATRIAL FIBRILLATION
     Dosage: 5MG:MON/WED/FRI?2.5MG:ALL OTHER DAY
     Route: 048
     Dates: start: 2003, end: 20121015
  2. VITAMIN D [Concomitant]
     Dosage: CAPS?1 DF: 800 UNITS?VITAMIN D2 400 UNIT
     Route: 048
  3. NIASPAN [Concomitant]
     Dosage: TABS
     Route: 048
  4. ASPIRIN [Concomitant]
     Dosage: TABS
     Route: 048
  5. CRESTOR [Concomitant]
     Dosage: TABS
     Route: 048
  6. TOPROL XL [Concomitant]
     Dosage: TABS
     Route: 048
  7. VITAMIN B12 [Concomitant]
     Dosage: INJECTION?1,000 MCG/ML
     Route: 030
  8. BENEFIBER [Concomitant]
     Dosage: 1 DF = 3 GRAM/3.5 GRAM:POWDER
     Route: 048
  9. NITROGLYCERIN TABS [Concomitant]
     Indication: CHEST PAIN
     Route: 060

REACTIONS (3)
  - Osteoporosis [Unknown]
  - Rash papular [Recovering/Resolving]
  - Skin ulcer [Unknown]
